FAERS Safety Report 20755779 (Version 1)
Quarter: 2022Q2

REPORT INFORMATION
  Report Type: Spontaneous
  Country: DE (occurrence: DE)
  Receive Date: 20220427
  Receipt Date: 20220427
  Transmission Date: 20220721
  Serious: Yes (Hospitalization, Disabling)
  Sender: FDA-Public Use
  Company Number: DE-CADRBFARM-2021196086

PATIENT
  Age: 59 Year
  Sex: Female
  Weight: 100 kg

DRUGS (8)
  1. ATORVASTATIN [Suspect]
     Active Substance: ATORVASTATIN
     Indication: Blood cholesterol increased
     Dosage: 5 MG, UNK
     Route: 048
     Dates: start: 20180325, end: 20180730
  2. EZETIMIBE [Suspect]
     Active Substance: EZETIMIBE
     Indication: Blood cholesterol increased
     Dosage: 10 MG, UNK
     Route: 048
     Dates: start: 20201201, end: 20201217
  3. ROSUVASTATIN [Suspect]
     Active Substance: ROSUVASTATIN
     Indication: Blood cholesterol increased
     Dosage: 5 MG, UNK
     Route: 048
     Dates: start: 20190803, end: 20190817
  4. ROSUVASTATIN [Suspect]
     Active Substance: ROSUVASTATIN
     Dosage: 5 MILLIGRAM, UNK
     Route: 048
     Dates: start: 20190321, end: 20190403
  5. lafamme 1mg/2mg [Concomitant]
     Indication: Product used for unknown indication
     Dosage: 1-0-0
     Route: 065
  6. seleni [Concomitant]
     Indication: Product used for unknown indication
     Dosage: 300 MILLIGRAM, DAILY, 1-0-0
     Route: 065
  7. CANDESARTAN [Concomitant]
     Active Substance: CANDESARTAN
     Indication: Product used for unknown indication
     Dosage: 16 MILLIGRAM, BID, 1-0-1
     Route: 065
  8. BISOPROLOL [Concomitant]
     Active Substance: BISOPROLOL
     Indication: Product used for unknown indication
     Dosage: 2.5 MILLIGRAM, BID, 1-0-1
     Route: 065

REACTIONS (17)
  - Myalgia [Recovered/Resolved]
  - Temporomandibular joint syndrome [Recovered/Resolved]
  - Pulpitis dental [Recovered/Resolved]
  - Osteitis [Recovered/Resolved]
  - Tooth extraction [Recovered/Resolved]
  - Ear pain [Unknown]
  - Arthralgia [Recovered/Resolved]
  - Arthropathy [Unknown]
  - Pain in jaw [Unknown]
  - Diplopia [Unknown]
  - Headache [Unknown]
  - Back pain [Unknown]
  - Nasopharyngitis [Recovered/Resolved]
  - Dizziness [Unknown]
  - Tooth extraction [Recovered/Resolved with Sequelae]
  - Parotitis [Unknown]
  - Toothache [Unknown]

NARRATIVE: CASE EVENT DATE: 20180401
